FAERS Safety Report 23797372 (Version 1)
Quarter: 2024Q2

REPORT INFORMATION
  Report Type: Spontaneous
  Country: IN (occurrence: IN)
  Receive Date: 20240430
  Receipt Date: 20240430
  Transmission Date: 20240715
  Serious: Yes (Other)
  Sender: FDA-Public Use
  Company Number: IN-CADILA HEALTHCARE LIMITED-IN-ZYDUS-105972

PATIENT

DRUGS (1)
  1. METHOTREXATE [Suspect]
     Active Substance: METHOTREXATE
     Indication: T-cell type acute leukaemia
     Dosage: UNK, HIGH-DOSE
     Route: 037

REACTIONS (1)
  - Toxic leukoencephalopathy [Unknown]
